FAERS Safety Report 15890698 (Version 1)
Quarter: 2019Q1

REPORT INFORMATION
  Report Type: Other
  Country: CN (occurrence: CN)
  Receive Date: 20190130
  Receipt Date: 20190130
  Transmission Date: 20190417
  Serious: Yes (Other)
  Sender: FDA-Public Use
  Company Number: CN-JIANGSU HENGRUI MEDICINE CO., LTD.-2061935

PATIENT
  Age: 56 Year
  Sex: Male
  Weight: 50 kg

DRUGS (2)
  1. CISPLATIN. [Suspect]
     Active Substance: CISPLATIN
     Route: 041
     Dates: start: 20170207, end: 20170210
  2. DOCETAXEL INJECTION USP, 20 MG/0.5 ML, SINGLE-DOSE VIAL, TWO-VIAL FORM [Suspect]
     Active Substance: DOCETAXEL
     Indication: DRUG THERAPY
     Route: 041
     Dates: start: 20170208, end: 20170208

REACTIONS (1)
  - Haematuria [Recovering/Resolving]

NARRATIVE: CASE EVENT DATE: 20170212
